FAERS Safety Report 23161413 (Version 2)
Quarter: 2023Q4

REPORT INFORMATION
  Report Type: Spontaneous
  Country: US (occurrence: US)
  Receive Date: 20231108
  Receipt Date: 20231211
  Transmission Date: 20240109
  Serious: Yes (Other)
  Sender: FDA-Public Use
  Company Number: US-GILEAD-2023-0650316

PATIENT
  Age: 63 Year
  Sex: Male

DRUGS (1)
  1. LENACAPAVIR [Suspect]
     Active Substance: LENACAPAVIR
     Indication: Product used for unknown indication
     Dosage: 3 ML
     Route: 058

REACTIONS (2)
  - Injection site necrosis [Not Recovered/Not Resolved]
  - Injection site swelling [Unknown]
